FAERS Safety Report 6936511-4 (Version None)
Quarter: 2010Q3

REPORT INFORMATION
  Report Type: 
  Country: None (occurrence: None)
  Receive Date: 20100818
  Receipt Date: 20100805
  Transmission Date: 20110219
  Serious: Yes (Hospitalization)
  Sender: FDA-Public Use
  Company Number: 016873

PATIENT
  Sex: Female
  Weight: 75 kg

DRUGS (6)
  1. CIMZIA [Suspect]
     Indication: CROHN'S DISEASE
     Dosage: (TWO INJECTION, MONTHLY SUBCUTANEOUS)
     Route: 058
     Dates: start: 20090101, end: 20100601
  2. AZATHIOPRINE [Concomitant]
  3. VITAMIN B12 NOS [Concomitant]
  4. FOLIC ACID [Concomitant]
  5. ENTOCORT EC [Concomitant]
  6. AVELOX [Concomitant]

REACTIONS (4)
  - COUGH [None]
  - DEHYDRATION [None]
  - DRUG DOSE OMISSION [None]
  - PNEUMONIA [None]
